FAERS Safety Report 7821316-2 (Version None)
Quarter: 2011Q4

REPORT INFORMATION
  Report Type: 
  Country: None (occurrence: None)
  Receive Date: 20111018
  Receipt Date: 20110810
  Transmission Date: 20120403
  Serious: No
  Sender: FDA-Public Use
  Company Number: US-ASTRAZENECA-2011SE33164

PATIENT
  Age: 74 Year
  Sex: Male

DRUGS (3)
  1. SYMBICORT [Suspect]
     Route: 055
  2. ALBUTEROL [Concomitant]
  3. ADVIL COLD AND SINUS [Concomitant]

REACTIONS (4)
  - ILL-DEFINED DISORDER [None]
  - CHRONIC OBSTRUCTIVE PULMONARY DISEASE [None]
  - DYSPNOEA [None]
  - DRUG DOSE OMISSION [None]
